FAERS Safety Report 4935326-6 (Version None)
Quarter: 2006Q1

REPORT INFORMATION
  Report Type: 
  Country: None (occurrence: None)
  Receive Date: 20060302
  Receipt Date: 20060210
  Transmission Date: 20060701
  Serious: Yes (Other)
  Sender: FDA-Public Use
  Company Number: US200602002577

PATIENT
  Age: 77 Year
  Sex: Female

DRUGS (1)
  1. CYMBALTA [Suspect]
     Indication: DEPRESSION
     Dosage: 30 MG

REACTIONS (10)
  - ASTHENIA [None]
  - BLOOD PRESSURE DECREASED [None]
  - CHILLS [None]
  - DIZZINESS [None]
  - FATIGUE [None]
  - HOT FLUSH [None]
  - HYPERHIDROSIS [None]
  - LETHARGY [None]
  - NAUSEA [None]
  - VISION BLURRED [None]
